FAERS Safety Report 7548986-0 (Version None)
Quarter: 2011Q2

REPORT INFORMATION
  Report Type: 
  Country: None (occurrence: None)
  Receive Date: 20110615
  Receipt Date: 20110610
  Transmission Date: 20111010
  Serious: Yes (Other)
  Sender: FDA-Public Use
  Company Number: US-GENZYME-FLUD-1001258

PATIENT
  Age: 34 Year
  Sex: Male

DRUGS (6)
  1. BUSULFAN [Suspect]
     Indication: STEM CELL TRANSPLANT
  2. TACROLIMUS [Concomitant]
     Indication: PROPHYLAXIS AGAINST GRAFT VERSUS HOST DISEASE
     Dosage: TAPERED ON DAY 100, AND DISCONTINUED 5 MONTHS AFTER TRANSPLANTATION
  3. METHOTREXATE [Concomitant]
     Indication: PROPHYLAXIS AGAINST GRAFT VERSUS HOST DISEASE
     Dosage: 5 MG/M2, OM DAYS 1, 3, 6, AND 11
  4. BUSULFAN [Suspect]
     Indication: ACUTE MYELOID LEUKAEMIA
     Dosage: UNK
     Route: 065
  5. FLUDARA [Suspect]
     Indication: ACUTE MYELOID LEUKAEMIA
     Dosage: UNK
     Route: 065
  6. FLUDARA [Suspect]
     Indication: STEM CELL TRANSPLANT

REACTIONS (3)
  - ORGANISING PNEUMONIA [None]
  - PLEUROPERICARDITIS [None]
  - INTERSTITIAL LUNG DISEASE [None]
